FAERS Safety Report 10056084 (Version 1)
Quarter: 2014Q2

REPORT INFORMATION
  Report Type: Spontaneous
  Country: US (occurrence: US)
  Receive Date: 20140403
  Receipt Date: 20140403
  Transmission Date: 20141212
  Serious: No
  Sender: FDA-Public Use
  Company Number: US-B.I. PHARMACEUTICALS,INC./RIDGEFIELD-2014-BI-12958BP

PATIENT
  Age: 94 Year
  Sex: Female

DRUGS (3)
  1. DIGOXIN [Concomitant]
     Route: 048
  2. METAXALONE [Concomitant]
     Route: 048
  3. PRADAXA [Suspect]
     Indication: PRODUCT USED FOR UNKNOWN INDICATION
     Dosage: 300 MG
     Route: 048
     Dates: start: 20140311

REACTIONS (1)
  - Decreased appetite [Not Recovered/Not Resolved]
